FAERS Safety Report 26170848 (Version 1)
Quarter: 2025Q4

REPORT INFORMATION
  Report Type: Spontaneous
  Country: US (occurrence: None)
  Receive Date: 20251217
  Receipt Date: 20251217
  Transmission Date: 20260118
  Serious: Yes (Other)
  Sender: FDA-CTU
  Company Number: None

PATIENT
  Age: 39 Year
  Sex: Male
  Weight: 103.95 kg

DRUGS (1)
  1. COSMETICS [Suspect]
     Active Substance: COSMETICS
     Indication: Dermatitis contact
     Dosage: 1 1?OTHER ROUTE : RUB ON SKIN
     Route: 050
     Dates: start: 20251208, end: 20251209

REACTIONS (3)
  - Application site pain [None]
  - Application site erythema [None]
  - Application site irritation [None]

NARRATIVE: CASE EVENT DATE: 20251208
